FAERS Safety Report 17561025 (Version 1)
Quarter: 2020Q1

REPORT INFORMATION
  Report Type: Spontaneous
  Country: US (occurrence: US)
  Receive Date: 20200319
  Receipt Date: 20200319
  Transmission Date: 20200409
  Serious: Yes (Other)
  Sender: FDA-Public Use
  Company Number: US-PFIZER INC-2020119171

PATIENT
  Age: 74 Year
  Sex: Male

DRUGS (1)
  1. LYRICA [Suspect]
     Active Substance: PREGABALIN
     Dosage: 200 MG, 2X/DAY(MAX: 600 MG/DAY)
     Route: 048
     Dates: start: 20200129

REACTIONS (2)
  - Generalised tonic-clonic seizure [Unknown]
  - Petit mal epilepsy [Unknown]
